FAERS Safety Report 9055994 (Version 3)
Quarter: 2013Q1

REPORT INFORMATION
  Report Type: Spontaneous
  Country: FR (occurrence: FR)
  Receive Date: 20130114
  Receipt Date: 20130114
  Transmission Date: 20140127
  Serious: Yes (Hospitalization, Other)
  Sender: FDA-Public Use
  Company Number: FR-JNJFOC-20121204277

PATIENT
  Age: 60 None
  Sex: Male
  Weight: 74.83 kg

DRUGS (6)
  1. XARELTO [Suspect]
     Indication: PULMONARY EMBOLISM
     Route: 048
     Dates: start: 201206, end: 20121011
  2. ERBITUX [Concomitant]
     Indication: SQUAMOUS CELL CARCINOMA
     Route: 065
  3. HEXAQUINE [Concomitant]
     Indication: PRODUCT USED FOR UNKNOWN INDICATION
     Route: 065
  4. MAGNESIUM [Concomitant]
     Indication: PRODUCT USED FOR UNKNOWN INDICATION
     Route: 065
  5. DOXYCYCLINE [Concomitant]
     Indication: ACNE
     Route: 048
  6. OFLOXACINE A [Concomitant]
     Indication: PYREXIA
     Route: 065
     Dates: start: 20121009

REACTIONS (6)
  - Jaundice [Recovered/Resolved]
  - Cholestasis [Recovered/Resolved]
  - Hepatocellular injury [Recovered/Resolved]
  - Hyperthermia [Recovered/Resolved]
  - Off label use [Unknown]
  - Abdominal pain upper [Recovered/Resolved]
